FAERS Safety Report 24002822 (Version 2)
Quarter: 2024Q3

REPORT INFORMATION
  Report Type: Report from Study
  Country: US (occurrence: US)
  Receive Date: 20240624
  Receipt Date: 20240704
  Transmission Date: 20241017
  Serious: Yes (Other)
  Sender: JOHNSON AND JOHNSON
  Company Number: US-JNJFOC-20240637142

PATIENT
  Age: 57 Year
  Sex: Male

DRUGS (3)
  1. SPRAVATO [Suspect]
     Active Substance: ESKETAMINE
     Indication: Depression
     Dosage: 56 MG, TOTAL OF 4 DOSES
     Dates: start: 20240425, end: 20240504
  2. SPRAVATO [Suspect]
     Active Substance: ESKETAMINE
     Dosage: 84 MG, TOTAL OF 10 DOSES
     Dates: start: 20240510, end: 20240615
  3. SPRAVATO [Suspect]
     Active Substance: ESKETAMINE
     Dosage: LAST DOSE
     Dates: start: 20240620, end: 20240620

REACTIONS (7)
  - Hallucination, visual [Unknown]
  - Suicidal ideation [Unknown]
  - Thinking abnormal [Not Recovered/Not Resolved]
  - Sensory disturbance [Unknown]
  - Depression [Not Recovered/Not Resolved]
  - Dissociation [Unknown]
  - Anxiety [Unknown]

NARRATIVE: CASE EVENT DATE: 20240501
